FAERS Safety Report 7561602-7 (Version None)
Quarter: 2011Q2

REPORT INFORMATION
  Report Type: 
  Country: None (occurrence: None)
  Receive Date: 20110621
  Receipt Date: 20110606
  Transmission Date: 20111010
  Serious: Yes (Other)
  Sender: FDA-Public Use
  Company Number: US-WATSON-2011-08673

PATIENT
  Age: 26 Year
  Sex: Female

DRUGS (3)
  1. CLONAZEPAM [Suspect]
     Indication: INTENTIONAL OVERDOSE
     Route: 048
  2. CARBAMAZEPINE [Suspect]
     Indication: INTENTIONAL OVERDOSE
     Route: 048
  3. ZONISAMIDE [Suspect]
     Indication: INTENTIONAL OVERDOSE
     Dosage: UNK G, SINGLE
     Route: 048

REACTIONS (4)
  - RESPIRATORY DEPRESSION [None]
  - INTENTIONAL OVERDOSE [None]
  - COMA [None]
  - HYPOTENSION [None]
